FAERS Safety Report 7069580-4 (Version None)
Quarter: 2010Q4

REPORT INFORMATION
  Report Type: 
  Country: None (occurrence: None)
  Receive Date: 20101028
  Receipt Date: 20100408
  Transmission Date: 20110411
  Serious: No
  Sender: FDA-Public Use
  Company Number: US-WYE-H14527510

PATIENT
  Weight: 77.18 kg

DRUGS (24)
  1. PROTONIX [Suspect]
     Indication: DYSPEPSIA
     Route: 048
     Dates: start: 20100101, end: 20100401
  2. PROTONIX [Suspect]
     Route: 048
     Dates: start: 20100401
  3. CARVEDILOL [Concomitant]
  4. DIGOXIN [Concomitant]
  5. RANITIDINE [Concomitant]
  6. FUROSEMIDE [Concomitant]
  7. SPIRONOLACTONE [Concomitant]
  8. POTASSIUM CHLORIDE [Concomitant]
  9. FERROUS GLUCONATE [Concomitant]
  10. EFFEXOR XR [Concomitant]
  11. ZETIA [Concomitant]
  12. SIMVASTATIN [Concomitant]
  13. COUMADIN [Concomitant]
  14. NITROGLYCERIN ^A.L.^ [Concomitant]
  15. VITAMIN D [Concomitant]
  16. NASONEX [Concomitant]
  17. HYDROCODONE [Concomitant]
  18. ACTONEL [Concomitant]
  19. RESTASIS [Concomitant]
  20. HYDROCODONE [Concomitant]
  21. FLUOROMETHOLONE [Concomitant]
  22. PROVENTIL [Concomitant]
  23. OXYGEN [Concomitant]
  24. COZAAR [Concomitant]

REACTIONS (3)
  - DECREASED APPETITE [None]
  - DIARRHOEA [None]
  - DRUG INEFFECTIVE [None]
